FAERS Safety Report 23757138 (Version 1)
Quarter: 2024Q2

REPORT INFORMATION
  Report Type: Spontaneous
  Country: CN (occurrence: CN)
  Receive Date: 20240418
  Receipt Date: 20240418
  Transmission Date: 20240716
  Serious: Yes (Life-Threatening, Other)
  Sender: FDA-Public Use
  Company Number: CN-BAXTER-2024BAX016577

PATIENT
  Age: 44 Year
  Sex: Female

DRUGS (7)
  1. CYCLOPHOSPHAMIDE [Suspect]
     Active Substance: CYCLOPHOSPHAMIDE
     Indication: Triple negative breast cancer
     Dosage: 500 MG/M2 (15MG/KG), RECEIVED FIRST CYCLE OF CHEMOTHERAPY AT 12:45, (NEOADJUVANT CHEMOTHERAPY)
     Route: 065
     Dates: start: 20230124
  2. DEXTROSE [Suspect]
     Active Substance: DEXTROSE\DEXTROSE MONOHYDRATE
     Indication: Medication dilution
     Dosage: 500ML OF 5% GLUCOSE WITH 10ML OF 15% POTASSIUM CHLORIDE
     Route: 041
     Dates: start: 20230124
  3. DOXORUBICIN [Concomitant]
     Active Substance: DOXORUBICIN
     Indication: Triple negative breast cancer
     Dosage: 100 MG/M2, RECEIVED FIRST CYCLE OF CHEMOTHERAPY  AT 12:45, (NEOADJUVANT CHEMOTHERAPY)
     Route: 065
     Dates: start: 20230124
  4. DEXAMETHASONE [Concomitant]
     Active Substance: DEXAMETHASONE
     Indication: Supportive care
     Dosage: 8 MG, SUPPORTIVE MEDICATIONS
     Route: 065
     Dates: start: 20230124
  5. ONDANSETRON [Concomitant]
     Active Substance: ONDANSETRON
     Indication: Supportive care
     Dosage: 5 MG, SUPPORTIVE MEDICATIONS
     Route: 065
     Dates: start: 20230124
  6. APREPITANT [Concomitant]
     Active Substance: APREPITANT
     Indication: Supportive care
     Dosage: 150 MG, SUPPORTIVE MEDICATIONS
     Route: 065
     Dates: start: 20230124
  7. SALINE [Concomitant]
     Active Substance: SODIUM CHLORIDE
     Indication: Dehydration
     Dosage: 0.5 LITERS OF ISOTONIC SALINE
     Route: 065
     Dates: start: 20230124

REACTIONS (8)
  - Hyponatraemia [Recovered/Resolved]
  - Palpitations [Recovered/Resolved]
  - Dizziness [Recovered/Resolved]
  - Fatigue [Recovered/Resolved]
  - Pallor [Recovered/Resolved]
  - Delirium [Recovered/Resolved]
  - Incoherent [Recovered/Resolved]
  - Diabetes insipidus [Recovered/Resolved]

NARRATIVE: CASE EVENT DATE: 20230124
